FAERS Safety Report 10884378 (Version 1)
Quarter: 2015Q1

REPORT INFORMATION
  Report Type: Spontaneous
  Country: US (occurrence: US)
  Receive Date: 20150304
  Receipt Date: 20150304
  Transmission Date: 20150721
  Serious: No
  Sender: FDA-Public Use
  Company Number: US-009507513-1502USA001386

PATIENT

DRUGS (2)
  1. EMEND [Suspect]
     Active Substance: APREPITANT
     Dosage: 125 MG, STRENGTH: 125/80 (UNIT NOT REPORTED)
     Route: 048
  2. EMEND [Suspect]
     Active Substance: APREPITANT
     Dosage: UNK
     Route: 048

REACTIONS (3)
  - Product physical issue [Unknown]
  - No adverse event [Unknown]
  - Wrong technique in drug usage process [Unknown]
